FAERS Safety Report 8618963 (Version 2)
Quarter: 2014Q1

REPORT INFORMATION
  Report Type: Spontaneous
  Country: US (occurrence: None)
  Receive Date: 20120323
  Receipt Date: 20140306
  Transmission Date: 20141002
  Serious: Yes (Other)
  Sender: FDA-Public Use
  Company Number: 163-21880-11043135

PATIENT
  Age: 73 Year
  Sex: Female

DRUGS (7)
  1. REVLIMID [Suspect]
     Indication: PLASMA CELL MYELOMA
     Route: 048
     Dates: start: 20100911
  2. OXYCODONE (OXYCODONE) [Concomitant]
  3. WARFARIN (WARFARIN) [Concomitant]
  4. L-THYROXINE (LEVOTHYROXINE) [Concomitant]
  5. OXYCODONE(OXYCODONE) [Concomitant]
  6. WARFARIN [Concomitant]
  7. L-THYROXINE(LEVOTHYROXINE) [Concomitant]

REACTIONS (1)
  - Diarrhoea [None]
